FAERS Safety Report 4436707-X (Version None)
Quarter: 2004Q3

REPORT INFORMATION
  Report Type: 
  Country: None (occurrence: None)
  Receive Date: 20040827
  Receipt Date: 20040827
  Transmission Date: 20050211
  Serious: Yes (Hospitalization)
  Sender: FDA-Public Use
  Company Number: None

PATIENT
  Age: 69 Year
  Sex: Male
  Weight: 119.5 kg

DRUGS (1)
  1. PROMETHAZINE [Suspect]
     Indication: NAUSEA
     Dosage: 25 MG IV Q 6 H PRN [1 DOSE]
     Route: 042
     Dates: start: 20040730

REACTIONS (6)
  - AGITATION [None]
  - MENTAL STATUS CHANGES [None]
  - MOVEMENT DISORDER [None]
  - RESTLESSNESS [None]
  - THERAPY NON-RESPONDER [None]
  - ULCER [None]
